FAERS Safety Report 17572297 (Version 1)
Quarter: 2020Q1

REPORT INFORMATION
  Report Type: Spontaneous
  Country: US (occurrence: US)
  Receive Date: 20200317
  Receipt Date: 20200317
  Transmission Date: 20200409
  Serious: No
  Sender: FDA-Public Use
  Company Number: None

PATIENT
  Age: 59 Year
  Sex: Male

DRUGS (1)
  1. PACLITAXEL INJ 300MG/50ML [Suspect]
     Active Substance: PACLITAXEL
     Dosage: OLTHER
     Route: 041
     Dates: start: 202003

REACTIONS (1)
  - Drug intolerance [None]

NARRATIVE: CASE EVENT DATE: 20200317
